FAERS Safety Report 14820388 (Version 4)
Quarter: 2018Q3

REPORT INFORMATION
  Report Type: Spontaneous
  Country: US (occurrence: US)
  Receive Date: 20180427
  Receipt Date: 20180801
  Transmission Date: 20181010
  Serious: Yes (Death, Congenital Anomaly, Other)
  Sender: FDA-Public Use
  Company Number: PHEH2018US016012

PATIENT
  Sex: Male

DRUGS (1)
  1. ZOFRAN [Suspect]
     Active Substance: ONDANSETRON HYDROCHLORIDE
     Indication: FOETAL EXPOSURE DURING PREGNANCY
     Route: 064

REACTIONS (5)
  - Hypoplastic left heart syndrome [Unknown]
  - Death [Fatal]
  - Injury [Unknown]
  - Tricuspid valve incompetence [Unknown]
  - Foetal exposure during pregnancy [Unknown]
